FAERS Safety Report 11867366 (Version 1)
Quarter: 2015Q4

REPORT INFORMATION
  Report Type: Spontaneous
  Country: US (occurrence: US)
  Receive Date: 20151224
  Receipt Date: 20151224
  Transmission Date: 20160305
  Serious: Yes (Hospitalization)
  Sender: FDA-Public Use
  Company Number: US-INSYS THERAPEUTICS, INC-INS201512-000557

PATIENT
  Sex: Female
  Weight: 88.45 kg

DRUGS (12)
  1. MELOXICAM. [Concomitant]
     Active Substance: MELOXICAM
  2. CARVEDILOL. [Concomitant]
     Active Substance: CARVEDILOL
     Indication: CARDIAC DISORDER
  3. CECLOR [Concomitant]
     Active Substance: CEFACLOR
  4. SUBSYS [Suspect]
     Active Substance: FENTANYL
     Indication: PAIN
  5. SUBSYS [Suspect]
     Active Substance: FENTANYL
  6. DULOXETINE. [Concomitant]
     Active Substance: DULOXETINE
  7. INSULIN [Concomitant]
     Active Substance: INSULIN NOS
     Indication: DIABETES MELLITUS
  8. SUBSYS [Suspect]
     Active Substance: FENTANYL
  9. LYRICA [Concomitant]
     Active Substance: PREGABALIN
  10. SUBSYS [Suspect]
     Active Substance: FENTANYL
  11. ZOLPIDEM [Concomitant]
     Active Substance: ZOLPIDEM\ZOLPIDEM TARTRATE
     Indication: SLEEP DISORDER
  12. LEVOTHYROXINE. [Concomitant]
     Active Substance: LEVOTHYROXINE

REACTIONS (3)
  - Memory impairment [Not Recovered/Not Resolved]
  - Vomiting [Not Recovered/Not Resolved]
  - Off label use [Unknown]
